FAERS Safety Report 13825591 (Version 1)
Quarter: 2017Q3

REPORT INFORMATION
  Report Type: Spontaneous
  Country: US (occurrence: US)
  Receive Date: 20170802
  Receipt Date: 20170802
  Transmission Date: 20171127
  Serious: Yes (Other)
  Sender: FDA-Public Use
  Company Number: US-IGSA-GTI004809

PATIENT
  Age: 73 Year
  Sex: Female

DRUGS (15)
  1. GAMUNEX-C [Suspect]
     Active Substance: HUMAN IMMUNOGLOBULIN G
     Dosage: UNK
     Route: 042
     Dates: start: 20150512
  2. CHOLECALCIFEROL [Concomitant]
     Active Substance: CHOLECALCIFEROL
     Dosage: UNK
  3. BIMATOPROST. [Concomitant]
     Active Substance: BIMATOPROST
     Dosage: UNK
  4. RIVAROXABAN [Concomitant]
     Active Substance: RIVAROXABAN
     Dosage: UNK
  5. GAMUNEX-C [Suspect]
     Active Substance: HUMAN IMMUNOGLOBULIN G
     Indication: PRODUCT USED FOR UNKNOWN INDICATION
     Dosage: UNK
     Route: 042
     Dates: start: 201605
  6. PEG                                /01543001/ [Concomitant]
     Active Substance: PEGINTERFERON ALFA-2B
     Dosage: UNK
  7. SENNA                              /00142201/ [Concomitant]
     Active Substance: SENNA LEAF
     Dosage: UNK
  8. TRAMADOL. [Concomitant]
     Active Substance: TRAMADOL
     Dosage: UNK UNK, PRN
  9. CALCIUM+VIT C                      /00436301/ [Concomitant]
     Dosage: UNK
  10. DORZOLAMIDE HCL AND TIMOLOL MALEATE [Concomitant]
     Active Substance: DORZOLAMIDE HYDROCHLORIDE\TIMOLOL MALEATE
     Dosage: UNK
  11. GAMUNEX-C [Suspect]
     Active Substance: HUMAN IMMUNOGLOBULIN G
     Dosage: UNK
     Route: 042
     Dates: start: 20160901
  12. BRIMONIDINE [Concomitant]
     Active Substance: BRIMONIDINE TARTRATE
     Dosage: UNK
  13. PREDNISONE. [Concomitant]
     Active Substance: PREDNISONE
     Dosage: UNK
  14. IRON                               /00023503/ [Concomitant]
     Active Substance: IRON
     Dosage: UNK
  15. PANTOPRAZOLE [Concomitant]
     Active Substance: PANTOPRAZOLE
     Dosage: UNK

REACTIONS (1)
  - Deep vein thrombosis [Unknown]

NARRATIVE: CASE EVENT DATE: 20160506
